FAERS Safety Report 4850275-X (Version None)
Quarter: 2005Q4

REPORT INFORMATION
  Report Type: 
  Country: None (occurrence: None)
  Receive Date: 20051123
  Receipt Date: 20050913
  Transmission Date: 20060501
  Serious: No
  Sender: FDA-Public Use
  Company Number: TPA2005A01051

PATIENT
  Age: 58 Year
  Sex: Female
  Weight: 56.246 kg

DRUGS (7)
  1. ROZEREM [Suspect]
     Indication: INSOMNIA
     Dosage: 8 MG, QHS, PER ORAL
     Route: 048
     Dates: start: 20050912
  2. AMITRIPTYLINE (AMITRIPTYLINE) [Concomitant]
  3. DIAZEPAM [Concomitant]
  4. BACLOFEN [Concomitant]
  5. SYNTHROID [Concomitant]
  6. PROMETRIUM [Concomitant]
  7. ESTRATEST H.S. [Concomitant]

REACTIONS (3)
  - INSOMNIA [None]
  - OVERDOSE [None]
  - THINKING ABNORMAL [None]
